FAERS Safety Report 6863741-2 (Version None)
Quarter: 2010Q3

REPORT INFORMATION
  Report Type: 
  Country: None (occurrence: None)
  Receive Date: 20100720
  Receipt Date: 20100714
  Transmission Date: 20110219
  Serious: Yes (Other)
  Sender: FDA-Public Use
  Company Number: 2010SP038998

PATIENT
  Age: 80 Year
  Sex: Male

DRUGS (2)
  1. MIRALAX [Suspect]
     Indication: CONSTIPATION
     Dosage: QD;PO
     Route: 048
  2. BLOOD PRESSURE [Concomitant]

REACTIONS (2)
  - FAECES DISCOLOURED [None]
  - NAUSEA [None]
